FAERS Safety Report 8113396-4 (Version None)
Quarter: 2012Q1

REPORT INFORMATION
  Report Type: 
  Country: None (occurrence: None)
  Receive Date: 20120203
  Receipt Date: 20120131
  Transmission Date: 20120608
  Serious: Yes (Death)
  Sender: FDA-Public Use
  Company Number: PHHY2012BR008597

PATIENT
  Sex: Female
  Weight: 80 kg

DRUGS (4)
  1. MORPHINE [Concomitant]
     Indication: CANCER PAIN
     Dosage: UNK
  2. PACO [Concomitant]
     Indication: CANCER PAIN
     Dosage: UNK
  3. DIOVAN HCT [Suspect]
     Indication: HYPERTENSION
     Dosage: 1 DF (160/12.5MG) DAILY
     Route: 048
  4. TRAMADOL HCL [Concomitant]
     Indication: CANCER PAIN
     Dosage: UNK

REACTIONS (1)
  - BREAST CANCER [None]
